FAERS Safety Report 19646774 (Version 2)
Quarter: 2021Q3

REPORT INFORMATION
  Report Type: Spontaneous
  Country: US (occurrence: US)
  Receive Date: 20210802
  Receipt Date: 20210830
  Transmission Date: 20211014
  Serious: Yes (Life-Threatening, Other)
  Sender: FDA-Public Use
  Company Number: US-PFIZER INC-202100943870

PATIENT
  Age: 54 Year
  Sex: Male

DRUGS (2)
  1. XELJANZ XR [Suspect]
     Active Substance: TOFACITINIB CITRATE
     Indication: RHEUMATOID ARTHRITIS
     Dosage: 11 MG, DAILY
     Route: 048
     Dates: start: 2020
  2. XELJANZ XR [Suspect]
     Active Substance: TOFACITINIB CITRATE
     Dosage: 11 MG, 1X/DAY
     Route: 048
     Dates: start: 2021, end: 20210807

REACTIONS (22)
  - COVID-19 [Recovering/Resolving]
  - Deafness [Unknown]
  - Hiccups [Unknown]
  - Depressed mood [Unknown]
  - Staphylococcal infection [Unknown]
  - Muscle spasms [Unknown]
  - Gait disturbance [Unknown]
  - Ageusia [Unknown]
  - Dyspnoea [Unknown]
  - Bedridden [Unknown]
  - Impaired quality of life [Unknown]
  - Chronic obstructive pulmonary disease [Unknown]
  - Condition aggravated [Unknown]
  - Anosmia [Unknown]
  - Weight decreased [Unknown]
  - Loss of consciousness [Recovered/Resolved]
  - Drug ineffective [Unknown]
  - Pyrexia [Unknown]
  - Respiratory arrest [Unknown]
  - Vomiting [Unknown]
  - Diarrhoea [Unknown]
  - Tinnitus [Unknown]

NARRATIVE: CASE EVENT DATE: 2020
